FAERS Safety Report 12331701 (Version 3)
Quarter: 2016Q2

REPORT INFORMATION
  Report Type: Spontaneous
  Country: BR (occurrence: BR)
  Receive Date: 20160504
  Receipt Date: 20160531
  Transmission Date: 20160815
  Serious: Yes (Other)
  Sender: FDA-Public Use
  Company Number: BR-JNJFOC-20160214547

PATIENT
  Age: 41 Year
  Sex: Female
  Weight: 78 kg

DRUGS (1)
  1. SIMPONI [Suspect]
     Active Substance: GOLIMUMAB
     Indication: RHEUMATOID ARTHRITIS
     Route: 058
     Dates: start: 20151118

REACTIONS (9)
  - Pain in extremity [Not Recovered/Not Resolved]
  - Hypokinesia [Unknown]
  - Arthralgia [Unknown]
  - Erythema [Unknown]
  - Peripheral swelling [Not Recovered/Not Resolved]
  - Pyrexia [Unknown]
  - Muscle spasms [Unknown]
  - Hypoaesthesia [Unknown]
  - Drug dose omission [Unknown]

NARRATIVE: CASE EVENT DATE: 201602
